FAERS Safety Report 9803855 (Version 1)
Quarter: 2014Q1

REPORT INFORMATION
  Report Type: Spontaneous
  Country: US (occurrence: US)
  Receive Date: 20140108
  Receipt Date: 20140108
  Transmission Date: 20141002
  Serious: No
  Sender: FDA-Public Use
  Company Number: US-GLAXOSMITHKLINE-A1048228A

PATIENT
  Age: 85 Year
  Sex: Female
  Weight: 67.7 kg

DRUGS (9)
  1. LOVAZA [Suspect]
     Indication: BLOOD TRIGLYCERIDES INCREASED
     Dosage: 2CAP TWICE PER DAY
     Route: 048
     Dates: start: 20111020, end: 20131022
  2. BABY ASPIRIN [Concomitant]
  3. COUMADIN [Concomitant]
  4. DIGOXIN [Concomitant]
  5. FUROSEMIDE [Concomitant]
  6. METOPROLOL [Concomitant]
  7. VALSARTAN [Concomitant]
  8. PRILOSEC [Concomitant]
  9. AMBIEN [Concomitant]

REACTIONS (2)
  - Ageusia [Unknown]
  - Decreased appetite [Unknown]
